FAERS Safety Report 20675126 (Version 2)
Quarter: 2022Q2

REPORT INFORMATION
  Report Type: Spontaneous
  Country: JP (occurrence: JP)
  Receive Date: 20220405
  Receipt Date: 20220413
  Transmission Date: 20220721
  Serious: Yes (Other)
  Sender: FDA-Public Use
  Company Number: JP-PFIZER INC-202200502318

PATIENT
  Age: 73 Year
  Sex: Male

DRUGS (4)
  1. MEROPENEM [Suspect]
     Active Substance: MEROPENEM
     Indication: Meningitis bacterial
     Dosage: 4G, QD
     Route: 041
  2. MEROPENEM [Suspect]
     Active Substance: MEROPENEM
     Dosage: 2G, QD
     Route: 041
  3. MEROPENEM [Suspect]
     Active Substance: MEROPENEM
     Dosage: 3G, QD
     Route: 041
  4. MEROPENEM [Suspect]
     Active Substance: MEROPENEM
     Dosage: 2G, QD
     Route: 041

REACTIONS (5)
  - Prinzmetal angina [Unknown]
  - Diabetes insipidus [Unknown]
  - Hyponatraemia [Unknown]
  - Chondrocalcinosis pyrophosphate [Unknown]
  - Off label use [Unknown]
